FAERS Safety Report 6558931-2 (Version None)
Quarter: 2010Q1

REPORT INFORMATION
  Report Type: 
  Country: None (occurrence: None)
  Receive Date: 20100129
  Receipt Date: 20100115
  Transmission Date: 20100710
  Serious: Yes (Death)
  Sender: FDA-Public Use
  Company Number: IT-GENENTECH-297081

PATIENT
  Sex: Male

DRUGS (3)
  1. MABTHERA [Suspect]
     Indication: NON-HODGKIN'S LYMPHOMA
     Dosage: 763 MG, UNK
     Route: 042
     Dates: start: 20091216, end: 20091216
  2. VINCRISTINE [Suspect]
     Indication: NON-HODGKIN'S LYMPHOMA STAGE IV
     Dosage: 2 MG, UNK
     Route: 042
     Dates: start: 20091217, end: 20091217
  3. ENDOXAN [Suspect]
     Indication: NON-HODGKIN'S LYMPHOMA STAGE IV
     Dosage: 1528 MG, UNK
     Route: 042
     Dates: start: 20091217, end: 20091217

REACTIONS (1)
  - ACUTE PULMONARY OEDEMA [None]
